FAERS Safety Report 12270283 (Version 1)
Quarter: 2016Q2

REPORT INFORMATION
  Report Type: Spontaneous
  Country: GB (occurrence: GB)
  Receive Date: 20160415
  Receipt Date: 20160415
  Transmission Date: 20160815
  Serious: Yes (Other)
  Sender: FDA-Public Use
  Company Number: GB-GE HEALTHCARE MEDICAL DIAGNOSTICS-VISP-PR-1604S-0181

PATIENT
  Age: 43 Year
  Sex: Female
  Weight: 86.5 kg

DRUGS (5)
  1. VISIPAQUE [Suspect]
     Active Substance: IODIXANOL
     Indication: DIAGNOSTIC PROCEDURE
  2. PREGABALIN. [Concomitant]
     Active Substance: PREGABALIN
  3. CERTRALINE [Concomitant]
  4. VISIPAQUE [Suspect]
     Active Substance: IODIXANOL
     Indication: CHEST PAIN
     Route: 013
     Dates: start: 20160406, end: 20160406
  5. MORPHINE [Concomitant]
     Active Substance: MORPHINE

REACTIONS (4)
  - Eye pruritus [Recovering/Resolving]
  - Rash [Recovering/Resolving]
  - Ocular hyperaemia [Recovering/Resolving]
  - Eye swelling [Recovering/Resolving]

NARRATIVE: CASE EVENT DATE: 20160406
